FAERS Safety Report 4648465-4 (Version None)
Quarter: 2005Q2

REPORT INFORMATION
  Report Type: 
  Country: None (occurrence: None)
  Receive Date: 20050427
  Receipt Date: 20050404
  Transmission Date: 20051028
  Serious: Yes (Death)
  Sender: FDA-Public Use
  Company Number: S05-ISR-01560-01

PATIENT
  Sex: Male

DRUGS (1)
  1. CIPRALEX (ESCITALOPRAM) [Suspect]

REACTIONS (1)
  - COMPLETED SUICIDE [None]
